FAERS Safety Report 21756131 (Version 3)
Quarter: 2023Q1

REPORT INFORMATION
  Report Type: Report from Study
  Country: US (occurrence: US)
  Receive Date: 20221220
  Receipt Date: 20230130
  Transmission Date: 20230418
  Serious: No
  Sender: FDA-Public Use
  Company Number: US-002147023-NVSC2022US293950

PATIENT
  Age: 51 Year
  Sex: Female

DRUGS (2)
  1. ENTRESTO [Suspect]
     Active Substance: SACUBITRIL\VALSARTAN
     Indication: Product used for unknown indication
     Dosage: UNK, BID
     Route: 048
     Dates: start: 202211
  2. ENTRESTO [Suspect]
     Active Substance: SACUBITRIL\VALSARTAN
     Dosage: 200 MG, BID (97/103 MG)
     Route: 048
     Dates: start: 20230118

REACTIONS (3)
  - Memory impairment [Unknown]
  - Heart rate increased [Unknown]
  - Hypertension [Unknown]

NARRATIVE: CASE EVENT DATE: 20221201
